FAERS Safety Report 19763220 (Version 16)
Quarter: 2025Q1

REPORT INFORMATION
  Report Type: Spontaneous
  Country: US (occurrence: US)
  Receive Date: 20210830
  Receipt Date: 20250106
  Transmission Date: 20250409
  Serious: No
  Sender: PFIZER
  Company Number: US-PFIZER INC-2020140850

PATIENT
  Age: 68 Year
  Sex: Female
  Weight: 63.96 kg

DRUGS (5)
  1. PREMARIN [Suspect]
     Active Substance: ESTROGENS, CONJUGATED
     Indication: Hormone replacement therapy
     Dates: start: 1994
  2. PREMARIN [Suspect]
     Active Substance: ESTROGENS, CONJUGATED
     Indication: Oestrogen deficiency
     Dosage: 1 AM + 1 PM
     Route: 048
     Dates: start: 20230606
  3. PREMARIN [Suspect]
     Active Substance: ESTROGENS, CONJUGATED
     Dosage: 1 AM + 1 PM
     Route: 048
     Dates: start: 20231103
  4. PREMARIN [Suspect]
     Active Substance: ESTROGENS, CONJUGATED
  5. PREMARIN [Suspect]
     Active Substance: ESTROGENS, CONJUGATED
     Dosage: TAKE 1 TABLET (0.625 MG) 2 TIMES DAILY BY MOUTH
     Route: 048

REACTIONS (2)
  - Confusional state [Unknown]
  - Thyroid disorder [Unknown]
